FAERS Safety Report 8435337-2 (Version None)
Quarter: 2012Q2

REPORT INFORMATION
  Report Type: 
  Country: None (occurrence: None)
  Receive Date: 20120608
  Receipt Date: 20120608
  Transmission Date: 20120825
  Serious: Yes (Other)
  Sender: FDA-Public Use
  Company Number: None

PATIENT
  Sex: Female

DRUGS (1)
  1. ENBREL [Suspect]
     Dosage: 50 MG, ONCE A WEEK, SQ
     Dates: start: 20120221, end: 20120607

REACTIONS (2)
  - RASH ERYTHEMATOUS [None]
  - HYPOAESTHESIA [None]
